FAERS Safety Report 7800966-3 (Version None)
Quarter: 2011Q4

REPORT INFORMATION
  Report Type: 
  Country: None (occurrence: None)
  Receive Date: 20111007
  Receipt Date: 20110927
  Transmission Date: 20120403
  Serious: Yes (Other)
  Sender: FDA-Public Use
  Company Number: AR-BRISTOL-MYERS SQUIBB COMPANY-16099806

PATIENT
  Age: 56 Year
  Sex: Male

DRUGS (3)
  1. INSULIN [Suspect]
     Indication: DIABETES MELLITUS
     Dosage: DECREASED FROM 100-120 TO 42 U/DAY
  2. SAXAGLIPTIN [Suspect]
     Indication: DIABETES MELLITUS
  3. METFORMIN HCL [Suspect]

REACTIONS (4)
  - ABDOMINAL PAIN [None]
  - GASTROOESOPHAGEAL REFLUX DISEASE [None]
  - HEPATITIS [None]
  - DYSPEPSIA [None]
